FAERS Safety Report 14010717 (Version 1)
Quarter: 2017Q3

REPORT INFORMATION
  Report Type: Spontaneous
  Country: GB (occurrence: GB)
  Receive Date: 20170926
  Receipt Date: 20170926
  Transmission Date: 20171128
  Serious: Yes (Life-Threatening, Hospitalization, Disabling, Other)
  Sender: FDA-Public Use
  Company Number: GB-DRREDDYS-GER/UKI/17/0093679

PATIENT
  Age: 23 Year
  Sex: Male

DRUGS (4)
  1. SERTRALINE [Suspect]
     Active Substance: SERTRALINE HYDROCHLORIDE
     Indication: PSYCHOTIC DISORDER
     Route: 048
     Dates: start: 2016, end: 2016
  2. RISPERIDONE. [Suspect]
     Active Substance: RISPERIDONE
     Indication: LIBIDO DISORDER
     Route: 048
     Dates: start: 2008, end: 2016
  3. ZUCLOPENTHIXOL [Concomitant]
     Active Substance: ZUCLOPENTHIXOL
     Indication: AFFECTIVE DISORDER
     Dosage: DEPOT. MOOD STABLISER
     Dates: start: 2008, end: 2017
  4. DIAZEPAM. [Suspect]
     Active Substance: DIAZEPAM
     Indication: ABNORMAL BEHAVIOUR
     Dates: start: 2015, end: 2016

REACTIONS (4)
  - Disorientation [Unknown]
  - Infertility [Unknown]
  - Pain [Unknown]
  - Fatigue [Unknown]
